FAERS Safety Report 26173225 (Version 1)
Quarter: 2025Q4

REPORT INFORMATION
  Report Type: Spontaneous
  Country: JP (occurrence: JP)
  Receive Date: 20251218
  Receipt Date: 20251218
  Transmission Date: 20260118
  Serious: Yes (Hospitalization, Disabling, Other)
  Sender: ACCORD
  Company Number: JP-MLMSERVICE-20251202-PI727455-00140-1

PATIENT
  Age: 10 Year
  Sex: Female

DRUGS (5)
  1. ETOPOSIDE [Suspect]
     Active Substance: ETOPOSIDE
     Indication: Acute myeloid leukaemia
  2. CYTARABINE [Suspect]
     Active Substance: CYTARABINE
     Indication: Acute myeloid leukaemia
  3. MITOXANTRONE [Suspect]
     Active Substance: MITOXANTRONE HYDROCHLORIDE
     Indication: Acute myeloid leukaemia
  4. FLUCONAZOLE [Concomitant]
     Active Substance: FLUCONAZOLE
     Indication: Antifungal prophylaxis
  5. SULFAMETHOXAZOLE\TRIMETHOPRIM [Concomitant]
     Active Substance: SULFAMETHOXAZOLE\TRIMETHOPRIM
     Indication: Antibiotic prophylaxis

REACTIONS (6)
  - Neurocryptococcosis [Recovered/Resolved]
  - Brain stem haemorrhage [Recovering/Resolving]
  - Meningitis cryptococcal [Recovered/Resolved]
  - Hemiplegia [Recovered/Resolved]
  - Febrile neutropenia [Recovered/Resolved]
  - Immune reconstitution inflammatory syndrome [Recovered/Resolved]
